FAERS Safety Report 4756765-2 (Version None)
Quarter: 2005Q3

REPORT INFORMATION
  Report Type: 
  Country: None (occurrence: None)
  Receive Date: 20050830
  Receipt Date: 20050517
  Transmission Date: 20060218
  Serious: Yes (Other)
  Sender: FDA-Public Use
  Company Number: PHNU2005DE01993

PATIENT
  Sex: Female
  Weight: 58 kg

DRUGS (5)
  1. ZOMETA [Suspect]
     Indication: MULTIPLE MYELOMA
     Dosage: 4 MG, QMO
     Route: 042
     Dates: start: 20030801
  2. VINCRISTINE + ADRIAMYCIN + DEXAMETHASONE [Concomitant]
     Indication: MULTIPLE MYELOMA
     Route: 065
     Dates: start: 20030901, end: 20040201
  3. DEXAMETHASONE [Concomitant]
     Indication: MULTIPLE MYELOMA
     Route: 065
     Dates: start: 20040301, end: 20040901
  4. THALIDOMID [Concomitant]
     Indication: MULTIPLE MYELOMA
     Route: 065
     Dates: start: 20040301, end: 20040901
  5. BORTEZOMIB [Concomitant]
     Indication: MULTIPLE MYELOMA
     Route: 065
     Dates: start: 20050401

REACTIONS (2)
  - ASEPTIC NECROSIS BONE [None]
  - DENTAL TREATMENT [None]
